FAERS Safety Report 5918238-0 (Version None)
Quarter: 2008Q3

REPORT INFORMATION
  Report Type: 
  Country: None (occurrence: None)
  Receive Date: 20080909
  Receipt Date: 20070821
  Transmission Date: 20090109
  Serious: Yes (Hospitalization, Other)
  Sender: FDA-Public Use
  Company Number: 163-20785-07060072

PATIENT
  Age: 71 Year
  Sex: Male

DRUGS (6)
  1. THALOMID [Suspect]
     Indication: MULTIPLE MYELOMA
     Dosage: 50 MG, 1 IN 1 D, ORAL ; 200 MG, 1 IN 1 D, ORAL
     Route: 048
     Dates: start: 20070323, end: 20070401
  2. THALOMID [Suspect]
     Indication: MULTIPLE MYELOMA
     Dosage: 50 MG, 1 IN 1 D, ORAL ; 200 MG, 1 IN 1 D, ORAL
     Route: 048
     Dates: start: 20070601
  3. IRON (IRON) [Concomitant]
  4. MIRALAX [Concomitant]
  5. DARBEPOETIN (DARBEPOETIN ALFA) [Concomitant]
  6. ASPIRIN [Concomitant]

REACTIONS (10)
  - ASTHENIA [None]
  - BRADYPHRENIA [None]
  - CONFUSIONAL STATE [None]
  - CONSTIPATION [None]
  - DYSARTHRIA [None]
  - FATIGUE [None]
  - HEART RATE DECREASED [None]
  - INSOMNIA [None]
  - MENTAL STATUS CHANGES [None]
  - NEUROPATHY PERIPHERAL [None]
